FAERS Safety Report 7297462-1 (Version None)
Quarter: 2011Q1

REPORT INFORMATION
  Report Type: 
  Country: None (occurrence: None)
  Receive Date: 20110216
  Receipt Date: 20110211
  Transmission Date: 20110831
  Serious: Yes (Hospitalization)
  Sender: FDA-Public Use
  Company Number: CA-ABBOTT-11P-028-0704628-00

PATIENT
  Sex: Male
  Weight: 74.91 kg

DRUGS (1)
  1. HUMIRA [Suspect]
     Indication: ANKYLOSING SPONDYLITIS
     Route: 058
     Dates: start: 20100415, end: 20110202

REACTIONS (10)
  - PHOTOPSIA [None]
  - HEADACHE [None]
  - SINUS DISORDER [None]
  - BACK PAIN [None]
  - HEART RATE INCREASED [None]
  - DIVERTICULITIS [None]
  - PARAESTHESIA [None]
  - DRUG INEFFECTIVE [None]
  - MYALGIA [None]
  - ANKYLOSING SPONDYLITIS [None]
